FAERS Safety Report 8961137 (Version 1)
Quarter: 2012Q4

REPORT INFORMATION
  Report Type: 
  Country: IL (occurrence: IL)
  Receive Date: 20121213
  Receipt Date: 20121213
  Transmission Date: 20130627
  Serious: No
  Sender: FDA-Public Use
  Company Number: IL-UCBSA-072808

PATIENT

DRUGS (1)
  1. CIMZIA [Suspect]

REACTIONS (1)
  - Eye disorder [Unknown]
